FAERS Safety Report 22333710 (Version 1)
Quarter: 2023Q2

REPORT INFORMATION
  Report Type: Spontaneous
  Country: GB (occurrence: GB)
  Receive Date: 20230517
  Receipt Date: 20230517
  Transmission Date: 20230721
  Serious: Yes (Life-Threatening, Disabling, Other)
  Sender: FDA-Public Use
  Company Number: GB-ANIPHARMA-2023-UK-000170

PATIENT
  Age: 28 Year
  Sex: Female
  Weight: 76 kg

DRUGS (13)
  1. CANDESARTAN [Suspect]
     Active Substance: CANDESARTAN
     Indication: Product used for unknown indication
     Dosage: 2 MG UNK
     Route: 065
  2. ACETAMINOPHEN [Concomitant]
     Active Substance: ACETAMINOPHEN
     Dosage: 1
     Route: 065
     Dates: start: 20230429
  3. PROGESTERONE [Concomitant]
     Active Substance: PROGESTERONE
     Dosage: 1 UNTIL 16 WEEKS
     Route: 065
     Dates: start: 20230309, end: 20230323
  4. ALBUTEROL [Concomitant]
     Active Substance: ALBUTEROL
     Dosage: 2
     Route: 055
     Dates: start: 20230414, end: 20230421
  5. TINZAPARIN(TINZAPARIN SODIUM [Concomitant]
     Dosage: 12,000 UNIT
     Route: 065
     Dates: start: 20221219, end: 20230503
  6. AMOXICILLIN [Concomitant]
     Active Substance: AMOXICILLIN
     Dosage: 08:00-1, 16:00-1, 00:00-1
     Route: 065
     Dates: start: 20230429
  7. ASPIRIN [Concomitant]
     Active Substance: ASPIRIN
     Dosage: 0.5
     Route: 065
     Dates: start: 20230301, end: 20230503
  8. CEPHALEXIN [Concomitant]
     Active Substance: CEPHALEXIN
     Route: 065
     Dates: start: 20230322, end: 20230329
  9. BECLOMETHASONE DIPROPIONATE [Concomitant]
     Active Substance: BECLOMETHASONE DIPROPIONATE
     Dosage: 3 ACTUATION
     Route: 065
     Dates: start: 20230428, end: 20230429
  10. AMOXICILLIN\CLAVULANATE POTASSIUM [Concomitant]
     Active Substance: AMOXICILLIN\CLAVULANATE POTASSIUM
     Dosage: 1
     Route: 065
     Dates: start: 20230406, end: 20230413
  11. COCODAMOL [Concomitant]
     Active Substance: ACETAMINOPHEN\CODEINE PHOSPHATE
     Dosage: TAKE 1 OR 2
     Route: 065
     Dates: start: 20230406, end: 20230420
  12. CODEINE PHOSPHATE [Concomitant]
     Active Substance: CODEINE PHOSPHATE
     Dosage: 1-2
     Route: 065
     Dates: start: 20230428, end: 20230429
  13. FOLIC ACID [Concomitant]
     Active Substance: FOLIC ACID
     Dosage: 1
     Route: 065
     Dates: start: 20221214, end: 20230503

REACTIONS (1)
  - Paralysis [Unknown]
